FAERS Safety Report 14132842 (Version 4)
Quarter: 2018Q1

REPORT INFORMATION
  Report Type: Report from Study
  Country: US (occurrence: US)
  Receive Date: 20171026
  Receipt Date: 20180125
  Transmission Date: 20180508
  Serious: No
  Sender: FDA-Public Use
  Company Number: US-AMGEN-USASL2017126093

PATIENT
  Age: 73 Year
  Sex: Female
  Weight: 79.37 kg

DRUGS (1)
  1. REPATHA [Suspect]
     Active Substance: EVOLOCUMAB
     Indication: ARTERIOSCLEROSIS
     Dosage: 420 MG, UNK
     Route: 058
     Dates: start: 20170717

REACTIONS (1)
  - Application site erythema [Recovered/Resolved]

NARRATIVE: CASE EVENT DATE: 20170817
